FAERS Safety Report 8811298 (Version 2)
Quarter: 2012Q4

REPORT INFORMATION
  Report Type: 
  Country: US (occurrence: US)
  Receive Date: 20120927
  Receipt Date: 20121029
  Transmission Date: 20130627
  Serious: Yes (Hospitalization)
  Sender: FDA-Public Use
  Company Number: US-ELI_LILLY_AND_COMPANY-US201209003986

PATIENT
  Age: 36 Year
  Sex: Male
  Weight: 93.42 kg

DRUGS (11)
  1. ZYPREXA RELPREVV [Suspect]
     Indication: SCHIZOPHRENIA, PARANOID TYPE
     Dosage: 300 mg, 2/M
     Dates: start: 201207
  2. ZYPREXA RELPREVV [Suspect]
     Dosage: 300 mg, other
     Dates: start: 20120823
  3. ZYPREXA RELPREVV [Suspect]
     Dosage: 300 mg, 2/M
  4. FLUOXETINE HYDROCHLORIDE [Suspect]
     Dosage: 10 mg, qd
  5. STRATTERA [Suspect]
     Indication: ATTENTION DEFICIT/HYPERACTIVITY DISORDER
     Dosage: 60 mg, bid
  6. VALIUM [Concomitant]
  7. INDERAL [Concomitant]
  8. RISPERDAL M [Concomitant]
  9. LUNESTA [Concomitant]
  10. ARTANE [Concomitant]
  11. VISTARIL [Concomitant]

REACTIONS (4)
  - Aggression [Recovered/Resolved]
  - Delusion [Recovered/Resolved]
  - Overdose [Recovered/Resolved]
  - Prescribed overdose [Not Recovered/Not Resolved]
